FAERS Safety Report 8343281-4 (Version None)
Quarter: 2012Q2

REPORT INFORMATION
  Report Type: 
  Country: None (occurrence: None)
  Receive Date: 20120503
  Receipt Date: 20120503
  Transmission Date: 20120825
  Serious: Yes (Hospitalization)
  Sender: FDA-Public Use
  Company Number: None

PATIENT
  Age: 60 Year
  Sex: Female

DRUGS (1)
  1. AMLODIPINE BESYLATE AND BENAZEPRIL HCL [Suspect]
     Dosage: TAKE 1 CAPSULE DAILY AT LEAST PAST YEAR TO PRESENT

REACTIONS (2)
  - PHARYNGEAL DISORDER [None]
  - ANGIOEDEMA [None]
